FAERS Safety Report 5930465-5 (Version None)
Quarter: 2008Q4

REPORT INFORMATION
  Report Type: 
  Country: None (occurrence: None)
  Receive Date: 20081023
  Receipt Date: 20060808
  Transmission Date: 20090506
  Serious: Yes (Other)
  Sender: FDA-Public Use
  Company Number: 2006AL002502

PATIENT
  Age: 24 Year
  Sex: Male

DRUGS (3)
  1. ACETAMINOPHEN AND CODEINE PHOSPHATE [Suspect]
  2. PAROXETINE HCL [Concomitant]
  3. ETHANOL [Concomitant]

REACTIONS (6)
  - CONDITION AGGRAVATED [None]
  - NIGHTMARE [None]
  - OVERDOSE [None]
  - PARAESTHESIA [None]
  - SUICIDE ATTEMPT [None]
  - WITHDRAWAL SYNDROME [None]
